FAERS Safety Report 4549840-9 (Version None)
Quarter: 2004Q4

REPORT INFORMATION
  Report Type: 
  Country: None (occurrence: None)
  Receive Date: 20041227
  Receipt Date: 20041101
  Transmission Date: 20050328
  Serious: No
  Sender: FDA-Public Use
  Company Number: 04P-163-0279536-00

PATIENT
  Age: 78 Year
  Sex: Female
  Weight: 43.0917 kg

DRUGS (11)
  1. HUMIRA [Suspect]
     Indication: RHEUMATOID ARTHRITIS
     Dosage: 40 MG, 1 IN 2 WK, SUBCUTANEOUS
     Route: 058
     Dates: start: 20030401
  2. METHOTREXATE SODIUM [Concomitant]
  3. TRAMADOL HCL [Concomitant]
  4. ESTRADIOL [Concomitant]
  5. RAMIPRIL [Concomitant]
  6. DIGOXIN [Concomitant]
  7. CALCIUM GLUCONATE [Concomitant]
  8. TOCOPHEROL CONCENTRATE CAP [Concomitant]
  9. FOLIC ACID [Concomitant]
  10. VITAMIN CAP [Concomitant]
  11. VITAMIN B COMPLEX CAP [Concomitant]

REACTIONS (1)
  - RHEUMATOID ARTHRITIS [None]
